FAERS Safety Report 15250738 (Version 1)
Quarter: 2018Q3

REPORT INFORMATION
  Report Type: Spontaneous
  Country: ES (occurrence: ES)
  Receive Date: 20180807
  Receipt Date: 20180807
  Transmission Date: 20181010
  Serious: Yes (Other)
  Sender: FDA-Public Use
  Company Number: PHHY2018ES059784

PATIENT
  Age: 58 Year

DRUGS (6)
  1. PRAMIPEXOLE. [Suspect]
     Active Substance: PRAMIPEXOLE
     Indication: PARKINSONISM
     Route: 065
  2. LEVODOPA [Suspect]
     Active Substance: LEVODOPA
     Indication: PARKINSONISM
     Route: 065
  3. ROPINIROLE. [Suspect]
     Active Substance: ROPINIROLE
     Indication: PARKINSONISM
     Route: 065
  4. PERGOLIDE [Suspect]
     Active Substance: PERGOLIDE
     Indication: PARKINSONISM
     Route: 065
  5. BENSERAZIDE [Suspect]
     Active Substance: BENSERAZIDE
     Indication: PARKINSONISM
     Route: 065
  6. CARBIDOPA. [Suspect]
     Active Substance: CARBIDOPA
     Indication: PARKINSONISM
     Route: 065

REACTIONS (1)
  - Drug intolerance [Unknown]
